FAERS Safety Report 20214331 (Version 1)
Quarter: 2021Q4

REPORT INFORMATION
  Report Type: Report from Study
  Country: DE (occurrence: US)
  Receive Date: 20211221
  Receipt Date: 20211221
  Transmission Date: 20220303
  Serious: Yes (Hospitalization, Other)
  Sender: FDA-Public Use
  Company Number: DE-EMA-DD-20200717-agrahari_P-182314

PATIENT
  Age: 49 Year
  Sex: Female
  Weight: 109 kg

DRUGS (19)
  1. PALBOCICLIB [Suspect]
     Active Substance: PALBOCICLIB
     Indication: Breast cancer
     Dosage: 125 MG, DAILY
     Route: 048
     Dates: start: 20171215, end: 20200612
  2. FULVESTRANT [Suspect]
     Active Substance: FULVESTRANT
     Indication: Breast cancer
     Dosage: UNK
     Route: 030
     Dates: start: 20171215, end: 20210929
  3. XGEVA [Suspect]
     Active Substance: DENOSUMAB
     Indication: Metastases to bone
     Dosage: UNK
     Route: 058
     Dates: start: 20160830, end: 20200317
  4. LEVOTHYROXINE SODIUM [Concomitant]
     Active Substance: LEVOTHYROXINE SODIUM
     Indication: Hypothyroidism
     Dosage: UNK
     Route: 048
     Dates: start: 20160718
  5. RIVAROXABAN [Concomitant]
     Active Substance: RIVAROXABAN
     Indication: Hypercoagulation
     Dosage: UNK
     Route: 048
     Dates: start: 20160804, end: 20210122
  6. MIRTAZAPIN RATIOPHARM [Concomitant]
     Indication: Depression
     Dosage: UNK
     Route: 048
     Dates: start: 20170725, end: 20180514
  7. MIRTAZAPIN RATIOPHARM [Concomitant]
     Dosage: UNK
     Route: 048
     Dates: start: 20180515, end: 20210715
  8. PANTOPRAZOLE [Concomitant]
     Active Substance: PANTOPRAZOLE
     Indication: Prophylaxis
     Dosage: UNK
     Route: 048
     Dates: start: 20171130
  9. CHOLECALCIFEROL [Concomitant]
     Active Substance: CHOLECALCIFEROL
     Indication: Depression
     Dosage: UNK
     Route: 048
     Dates: start: 20171130
  10. MELOXICAM [Concomitant]
     Active Substance: MELOXICAM
     Indication: Arthralgia
     Dosage: UNK
     Route: 048
     Dates: start: 20190514
  11. AMOXICILLIN\CLAVULANIC ACID [Concomitant]
     Active Substance: AMOXICILLIN\CLAVULANIC ACID
     Indication: Tooth infection
     Dosage: UNK
     Route: 048
     Dates: start: 20200504, end: 20200806
  12. ACETAZOLAMIDE [Concomitant]
     Active Substance: ACETAZOLAMIDE
     Indication: Cataract
     Dosage: UNK
     Route: 048
     Dates: start: 20200127, end: 20200501
  13. ACETAZOLAMIDE [Concomitant]
     Active Substance: ACETAZOLAMIDE
     Dosage: UNK
     Route: 048
     Dates: start: 20200203
  14. UNACID [SULTAMICILLIN TOSILATE] [Concomitant]
     Indication: Diarrhoea
     Dosage: UNK
     Route: 048
     Dates: start: 20200206, end: 20200211
  15. SERTRALINE [Concomitant]
     Active Substance: SERTRALINE HYDROCHLORIDE
     Indication: Depression
     Dosage: UNK
     Route: 048
     Dates: start: 20200715, end: 20210318
  16. CALCIUM [Concomitant]
     Active Substance: CALCIUM
     Indication: Prophylaxis
     Dosage: UNK
     Route: 048
     Dates: start: 20201126
  17. APIXABAN [Concomitant]
     Active Substance: APIXABAN
     Indication: Prophylaxis
     Dosage: UNK
     Route: 048
     Dates: start: 20210201
  18. AGOMELATINE [Concomitant]
     Active Substance: AGOMELATINE
     Indication: Depression
     Dosage: UNK
     Route: 048
     Dates: start: 20210323
  19. TELMISARTAN [Concomitant]
     Active Substance: TELMISARTAN
     Indication: Hypertensive heart disease
     Dosage: UNK
     Route: 048
     Dates: start: 20210523, end: 20210708

REACTIONS (2)
  - Glaucoma [Not Recovered/Not Resolved]
  - Osteonecrosis of jaw [Recovered/Resolved]

NARRATIVE: CASE EVENT DATE: 20200101
